FAERS Safety Report 16683360 (Version 1)
Quarter: 2019Q3

REPORT INFORMATION
  Report Type: Spontaneous
  Country: BY (occurrence: BY)
  Receive Date: 20190808
  Receipt Date: 20190808
  Transmission Date: 20191004
  Serious: Yes (Hospitalization)
  Sender: FDA-Public Use
  Company Number: BY-JNJFOC-20190715929

PATIENT
  Age: 80 Year
  Sex: Male

DRUGS (2)
  1. CEREPRO [Concomitant]
     Dosage: 0.4 MG, BID
     Route: 065
  2. XARELTO [Suspect]
     Active Substance: RIVAROXABAN
     Indication: ATRIAL FIBRILLATION
     Dosage: 15 MG, QD
     Route: 048

REACTIONS (3)
  - Transient ischaemic attack [Recovering/Resolving]
  - Hypertensive encephalopathy [Recovering/Resolving]
  - Hypertensive crisis [Recovering/Resolving]

NARRATIVE: CASE EVENT DATE: 20190621
